FAERS Safety Report 20162350 (Version 2)
Quarter: 2022Q1

REPORT INFORMATION
  Report Type: Spontaneous
  Country: JP (occurrence: JP)
  Receive Date: 20211208
  Receipt Date: 20220105
  Transmission Date: 20220423
  Serious: Yes (Hospitalization, Other)
  Sender: FDA-Public Use
  Company Number: JP-PFIZER INC-202101689190

PATIENT
  Age: 85 Year

DRUGS (1)
  1. VYNDAQEL [Suspect]
     Active Substance: TAFAMIDIS MEGLUMINE
     Indication: Cardiac amyloidosis
     Dosage: FOUR 20-MG CAPSULES, DAILY
     Route: 048

REACTIONS (4)
  - Pneumonia [Not Recovered/Not Resolved]
  - Lung abscess [Not Recovered/Not Resolved]
  - Myelosuppression [Not Recovered/Not Resolved]
  - Anaemia [Not Recovered/Not Resolved]
